FAERS Safety Report 19882069 (Version 2)
Quarter: 2021Q3

REPORT INFORMATION
  Report Type: Spontaneous
  Country: FR (occurrence: FR)
  Receive Date: 20210924
  Receipt Date: 20210930
  Transmission Date: 20211014
  Serious: Yes (Hospitalization)
  Sender: FDA-Public Use
  Company Number: FR-009507513-2109FRA004222

PATIENT
  Age: 69 Year
  Sex: Male
  Weight: 57 kg

DRUGS (14)
  1. IVERMECTIN. [Suspect]
     Active Substance: IVERMECTIN
     Indication: ACARODERMATITIS
     Dosage: 200 MICROGRAM PER KILOGRAM,3 TOTAL,APPLIED 3 TIMES : ON 10?AUG, 17?AUG AND 24?AUG?2021
     Route: 048
     Dates: start: 20210810, end: 20210824
  2. METHOTREXATE. [Concomitant]
     Active Substance: METHOTREXATE
     Indication: EOSINOPHILIA
     Dosage: UNK
     Route: 058
     Dates: start: 20210818
  3. BETNEVAL [Concomitant]
     Active Substance: BETAMETHASONE VALERATE
     Indication: ECZEMA
     Dosage: UNK
     Route: 061
     Dates: start: 20210819
  4. NERISONE [Concomitant]
     Active Substance: DIFLUCORTOLONE VALERATE
     Indication: EOSINOPHILIA
  5. ATARAX [Concomitant]
     Active Substance: HYDROXYZINE HYDROCHLORIDE
     Indication: PRURITUS
     Dosage: 50 MILLIGRAM
     Route: 048
     Dates: start: 20210813, end: 20210815
  6. CERAT DE GALIEN [Suspect]
     Active Substance: ALMOND OIL\WHITE WAX
     Indication: ACARODERMATITIS
     Dosage: 1 DOSAGE FORM
     Route: 061
     Dates: start: 20210810
  7. BETNEVAL [Concomitant]
     Active Substance: BETAMETHASONE VALERATE
     Indication: EOSINOPHILIA
  8. ATARAX [Concomitant]
     Active Substance: HYDROXYZINE HYDROCHLORIDE
     Dosage: 100 MILLIGRAM, QD
     Route: 048
     Dates: start: 20210817
  9. TOPISCAB [Suspect]
     Active Substance: PERMETHRIN
     Indication: ACARODERMATITIS
     Dosage: 1 DOSAGE FORM, 2 TOTAL, APPLIED 2 TIMES : ON 10?AUG AND ON 17?AUG?2021
     Route: 061
     Dates: start: 20210810, end: 20210817
  10. PERINDOPRIL [Concomitant]
     Active Substance: PERINDOPRIL
     Indication: HYPERTENSION
     Dosage: 4 MILLIGRAM, QD
     Route: 048
  11. SPECIAFOLDINE [Concomitant]
     Active Substance: FOLIC ACID
     Indication: VITAMIN SUPPLEMENTATION
     Dosage: UNK
     Route: 048
  12. NERISONE [Concomitant]
     Active Substance: DIFLUCORTOLONE VALERATE
     Indication: ECZEMA
     Dosage: 30 GRAM, QD
     Route: 061
     Dates: start: 20210813, end: 20210818
  13. METHOTREXATE. [Concomitant]
     Active Substance: METHOTREXATE
     Indication: ECZEMA
  14. ATARAX [Concomitant]
     Active Substance: HYDROXYZINE HYDROCHLORIDE
     Dosage: 75 MILLIGRAM, QD
     Route: 048
     Dates: start: 20210816, end: 20210816

REACTIONS (2)
  - Eosinophilia [Recovering/Resolving]
  - Eczema [Recovering/Resolving]

NARRATIVE: CASE EVENT DATE: 20210812
